FAERS Safety Report 5528116-7 (Version None)
Quarter: 2007Q4

REPORT INFORMATION
  Report Type: 
  Country: None (occurrence: None)
  Receive Date: 20071123
  Receipt Date: 20071106
  Transmission Date: 20080405
  Serious: Yes (Hospitalization)
  Sender: FDA-Public Use
  Company Number: T07-TUN-05611-01

PATIENT
  Age: 21 Year
  Sex: Female
  Weight: 49.1 kg

DRUGS (2)
  1. ESCITALOPRAM [Suspect]
     Indication: MAJOR DEPRESSION
     Dosage: 10 MG QD
     Dates: start: 20070716, end: 20070725
  2. AMISULPRIDE [Concomitant]

REACTIONS (1)
  - HYPOTENSION [None]
